FAERS Safety Report 7064812-0 (Version None)
Quarter: 2010Q4

REPORT INFORMATION
  Report Type: 
  Country: None (occurrence: None)
  Receive Date: 20101021
  Receipt Date: 20101021
  Transmission Date: 20110411
  Serious: Yes (Hospitalization, Disabling, Other)
  Sender: FDA-Public Use
  Company Number: None

PATIENT
  Age: 38 Year
  Sex: Female
  Weight: 56.6996 kg

DRUGS (6)
  1. TOPIRAMATE [Suspect]
     Indication: MIGRAINE
     Dosage: 25MG 1X CYC/MG 2 100MG  3XDAILY
     Route: 048
     Dates: start: 20070101
  2. TOPIRAMATE [Suspect]
     Dosage: 100MG 3X DAILY ORAL
     Route: 048
  3. DEPAKOTE [Concomitant]
  4. VERAPAMIL [Concomitant]
  5. ZOMIG [Concomitant]
  6. FIORICET [Concomitant]

REACTIONS (10)
  - ABNORMAL BEHAVIOUR [None]
  - BIPOLAR DISORDER [None]
  - BONE DISORDER [None]
  - DEHYDRATION [None]
  - DELUSION [None]
  - DISTURBANCE IN ATTENTION [None]
  - DYSPNOEA [None]
  - PARAESTHESIA [None]
  - SPEECH DISORDER [None]
  - VISION BLURRED [None]
